FAERS Safety Report 6565994-7 (Version None)
Quarter: 2010Q1

REPORT INFORMATION
  Report Type: 
  Country: None (occurrence: None)
  Receive Date: 20100129
  Receipt Date: 20100129
  Transmission Date: 20100710
  Serious: No
  Sender: FDA-Public Use
  Company Number: None

PATIENT

DRUGS (1)
  1. XOPENEX [Suspect]
     Dosage: 1.25 MILLILITERS

REACTIONS (3)
  - BURNING SENSATION [None]
  - HAND FRACTURE [None]
  - SWOLLEN TONGUE [None]
